FAERS Safety Report 6173188-2 (Version None)
Quarter: 2009Q2

REPORT INFORMATION
  Report Type: 
  Country: None (occurrence: None)
  Receive Date: 20090430
  Receipt Date: 20090421
  Transmission Date: 20091009
  Serious: Yes (Other)
  Sender: FDA-Public Use
  Company Number: US-PFIZER INC-2009200770

PATIENT
  Sex: Female
  Weight: 34.467 kg

DRUGS (1)
  1. SUNITINIB MALATE [Suspect]
     Indication: BREAST CANCER
     Dosage: 25 MG, 1X/DAY
     Dates: start: 20081121

REACTIONS (1)
  - SYNCOPE [None]
